FAERS Safety Report 7443447-1 (Version None)
Quarter: 2011Q2

REPORT INFORMATION
  Report Type: 
  Country: None (occurrence: None)
  Receive Date: 20110428
  Receipt Date: 20110425
  Transmission Date: 20111010
  Serious: Yes (Hospitalization)
  Sender: FDA-Public Use
  Company Number: US-TEVA-274382USA

PATIENT
  Sex: Male

DRUGS (4)
  1. SAXAGLIPTIN/PLACEBO [Suspect]
     Indication: TYPE 2 DIABETES MELLITUS
     Dates: start: 20100915, end: 20110408
  2. METFFORMIN HYDROCHLORIDE [Suspect]
     Indication: TYPE 2 DIABETES MELLITUS
  3. CARVEDILOL [Suspect]
     Indication: HYPERTENSION
  4. ALDACTAZIDE-A [Suspect]
     Indication: HYPERTENSION

REACTIONS (1)
  - RENAL FAILURE [None]
